FAERS Safety Report 20315724 (Version 1)
Quarter: 2022Q1

REPORT INFORMATION
  Report Type: Other
  Country: US (occurrence: None)
  Receive Date: 20220110
  Receipt Date: 20220110
  Transmission Date: 20220423
  Serious: No
  Sender: FDA-Public Use
  Company Number: US-ROCHE-2814306

PATIENT
  Age: 44 Year
  Sex: Female

DRUGS (10)
  1. RITUXIMAB [Suspect]
     Active Substance: RITUXIMAB
     Indication: Granulomatosis with polyangiitis
     Route: 065
  2. PREDNISONE [Suspect]
     Active Substance: PREDNISONE
     Indication: Granulomatosis with polyangiitis
     Route: 065
  3. PREDNISONE [Suspect]
     Active Substance: PREDNISONE
     Route: 065
  4. PREDNISONE [Suspect]
     Active Substance: PREDNISONE
     Route: 065
  5. PREDNISONE [Suspect]
     Active Substance: PREDNISONE
     Route: 065
  6. COLCHICINE [Concomitant]
     Active Substance: COLCHICINE
     Indication: Granulomatosis with polyangiitis
  7. COLCHICINE [Concomitant]
     Active Substance: COLCHICINE
  8. TACROLIMUS [Concomitant]
     Active Substance: TACROLIMUS
     Indication: Granulomatosis with polyangiitis
  9. EVEROLIMUS [Concomitant]
     Active Substance: EVEROLIMUS
     Indication: Granulomatosis with polyangiitis
  10. ANAKINRA [Concomitant]
     Active Substance: ANAKINRA
     Indication: Granulomatosis with polyangiitis

REACTIONS (1)
  - Respiratory syncytial virus infection [Unknown]
